FAERS Safety Report 6396040-6 (Version None)
Quarter: 2009Q4

REPORT INFORMATION
  Report Type: 
  Country: None (occurrence: None)
  Receive Date: 20091007
  Receipt Date: 20090925
  Transmission Date: 20100525
  Serious: Yes (Other)
  Sender: FDA-Public Use
  Company Number: 2009090035

PATIENT
  Age: 52 Year
  Sex: Female
  Weight: 108.8633 kg

DRUGS (4)
  1. ASTELIN [Suspect]
     Indication: RHINITIS ALLERGIC
     Dosage: 548 MCG (548 MCG, 1 IN 1 D), IN
     Dates: start: 20070101
  2. NASACORT AQ (TRIAMCINOLONE ACETONIDE) [Concomitant]
  3. ADVAIR (FLUTICASONE PROPIONATE, SALMETEROL) [Concomitant]
  4. ESTRASORB CREAM (ESTRADIOL) [Concomitant]

REACTIONS (1)
  - BLOOD GLUCOSE INCREASED [None]
